FAERS Safety Report 19908933 (Version 2)
Quarter: 2021Q4

REPORT INFORMATION
  Report Type: Spontaneous
  Country: TR (occurrence: TR)
  Receive Date: 20211001
  Receipt Date: 20211222
  Transmission Date: 20220303
  Serious: No
  Sender: FDA-Public Use
  Company Number: TR-009507513-2109TUR007471

PATIENT
  Sex: Male

DRUGS (3)
  1. TEMODAL [Suspect]
     Active Substance: TEMOZOLOMIDE
     Indication: Glioblastoma
     Dosage: 260 MILLIGRAM
     Dates: start: 20140114, end: 20140119
  2. TEMODAL [Suspect]
     Active Substance: TEMOZOLOMIDE
     Indication: Meningioma
     Dosage: (DURING 5 DAYS BETWEEN FEB AND MAY, 2014)
     Route: 048
     Dates: start: 201402, end: 201405
  3. DEXAMETHASONE [Concomitant]
     Active Substance: DEXAMETHASONE

REACTIONS (1)
  - Lymphopenia [Unknown]
